FAERS Safety Report 8482012-4 (Version None)
Quarter: 2012Q3

REPORT INFORMATION
  Report Type: 
  Country: None (occurrence: None)
  Receive Date: 20120702
  Receipt Date: 20120618
  Transmission Date: 20120928
  Serious: Yes (Hospitalization, Other)
  Sender: FDA-Public Use
  Company Number: US-SHIRE-ALL1-2012-03040

PATIENT
  Sex: Male
  Weight: 72.562 kg

DRUGS (2)
  1. ADDERALL 5 [Suspect]
     Indication: PRODUCT USED FOR UNKNOWN INDICATION
     Dosage: UNK, UNKNOWN
     Route: 048
     Dates: start: 20081001, end: 20120101
  2. ADDERALL XR 10 [Suspect]
     Indication: MENTAL DISORDER
     Dosage: UNK, (UP TO 50 MG DAILY) AS REQ'D
     Route: 048
     Dates: start: 20081001, end: 20120101

REACTIONS (11)
  - PAIN IN EXTREMITY [None]
  - INSOMNIA [None]
  - OVERDOSE [None]
  - GENERAL PHYSICAL CONDITION ABNORMAL [None]
  - NERVOUS SYSTEM DISORDER [None]
  - TREMOR [None]
  - MYOCARDIAL INFARCTION [None]
  - IMMOBILE [None]
  - ELECTROCARDIOGRAM ABNORMAL [None]
  - IRRITABILITY [None]
  - DRUG PRESCRIBING ERROR [None]
